FAERS Safety Report 9846397 (Version 2)
Quarter: 2014Q1

REPORT INFORMATION
  Report Type: Spontaneous
  Country: US (occurrence: None)
  Receive Date: 20140122
  Receipt Date: 20140127
  Transmission Date: 20141002
  Serious: Yes (Other)
  Sender: FDA-Public Use
  Company Number: 2014SA005534

PATIENT
  Sex: Female

DRUGS (1)
  1. ASPERCREME HEAT RELIEVING GEL [Suspect]
     Indication: MYALGIA
     Dates: start: 20140109

REACTIONS (4)
  - Application site burn [None]
  - Application site erythema [None]
  - Alopecia [None]
  - Application site pain [None]
